FAERS Safety Report 22386635 (Version 1)
Quarter: 2023Q2

REPORT INFORMATION
  Report Type: Spontaneous
  Country: US (occurrence: US)
  Receive Date: 20230531
  Receipt Date: 20230531
  Transmission Date: 20230721
  Serious: No
  Sender: FDA-Public Use
  Company Number: US-GSK-US2023AMR074003

PATIENT
  Sex: Female

DRUGS (1)
  1. ALBUTEROL [Suspect]
     Active Substance: ALBUTEROL
     Indication: Bronchitis
     Dosage: UNK

REACTIONS (5)
  - Hypoaesthesia oral [Recovered/Resolved]
  - Anxiety [Recovered/Resolved]
  - Tearfulness [Recovered/Resolved]
  - Muscle spasms [Recovered/Resolved]
  - Muscle strain [Recovered/Resolved]
